FAERS Safety Report 14063671 (Version 3)
Quarter: 2018Q1

REPORT INFORMATION
  Report Type: Spontaneous
  Country: US (occurrence: US)
  Receive Date: 20171009
  Receipt Date: 20180220
  Transmission Date: 20180508
  Serious: Yes (Hospitalization)
  Sender: FDA-Public Use
  Company Number: US-GLAXOSMITHKLINE-US2017GSK151646

PATIENT
  Age: 75 Year
  Sex: Female

DRUGS (20)
  1. DILTIAZEM. [Concomitant]
     Active Substance: DILTIAZEM
  2. CLARITIN [Concomitant]
     Active Substance: LORATADINE
  3. WARFARIN [Concomitant]
     Active Substance: WARFARIN
  4. FLOVENT DISKUS [Suspect]
     Active Substance: FLUTICASONE PROPIONATE
     Indication: ASTHMA
  5. CLONAZEPAM. [Concomitant]
     Active Substance: CLONAZEPAM
  6. FLOVENT DISKUS [Suspect]
     Active Substance: FLUTICASONE PROPIONATE
     Indication: CHRONIC OBSTRUCTIVE PULMONARY DISEASE
     Dosage: 1 PUFF(S), TID
     Route: 055
     Dates: start: 2016
  7. OMEPRAZOLE. [Concomitant]
     Active Substance: OMEPRAZOLE
  8. BREO ELLIPTA [Suspect]
     Active Substance: FLUTICASONE FUROATE\VILANTEROL TRIFENATATE
     Indication: CHRONIC OBSTRUCTIVE PULMONARY DISEASE
  9. MAGNESIUM [Concomitant]
     Active Substance: MAGNESIUM
  10. XALATAN [Concomitant]
     Active Substance: LATANOPROST
  11. METOPROLOL. [Concomitant]
     Active Substance: METOPROLOL
  12. ALBUTEROL SULFATE. [Concomitant]
     Active Substance: ALBUTEROL SULFATE
  13. BREO ELLIPTA [Suspect]
     Active Substance: FLUTICASONE FUROATE\VILANTEROL TRIFENATATE
     Indication: ASTHMA
     Dosage: 1 PUFF(S), 1D
     Route: 055
     Dates: start: 20170926
  14. INCRUSE ELLIPTA [Suspect]
     Active Substance: UMECLIDINIUM BROMIDE
     Indication: PRODUCT USED FOR UNKNOWN INDICATION
     Dosage: 1 PUFF(S), 1D
     Route: 055
     Dates: start: 20170926
  15. LORATADINE. [Concomitant]
     Active Substance: LORATADINE
  16. XOPENEX [Concomitant]
     Active Substance: LEVALBUTEROL HYDROCHLORIDE
  17. PEPCID AC [Concomitant]
     Active Substance: FAMOTIDINE
  18. MUCINEX [Concomitant]
     Active Substance: GUAIFENESIN
  19. ZINC. [Concomitant]
     Active Substance: ZINC
  20. CALCIUM [Concomitant]
     Active Substance: CALCIUM

REACTIONS (11)
  - Frequent bowel movements [Not Recovered/Not Resolved]
  - Malaise [Recovered/Resolved]
  - Diarrhoea [Not Recovered/Not Resolved]
  - Milk allergy [Not Recovered/Not Resolved]
  - Drug dose omission [Unknown]
  - Abdominal pain upper [Not Recovered/Not Resolved]
  - Medication error [Unknown]
  - Headache [Recovered/Resolved]
  - Hypotension [Not Recovered/Not Resolved]
  - Syncope [Recovered/Resolved]
  - Contraindicated product administered [Not Recovered/Not Resolved]

NARRATIVE: CASE EVENT DATE: 2016
